FAERS Safety Report 18999482 (Version 6)
Quarter: 2023Q4

REPORT INFORMATION
  Report Type: Other
  Country: TR (occurrence: None)
  Receive Date: 20210311
  Receipt Date: 20231120
  Transmission Date: 20240110
  Serious: No
  Sender: FDA-Public Use
  Company Number: TR-ROCHE-2788292

PATIENT
  Age: 40 Year
  Sex: Female
  Weight: 80 kg

DRUGS (15)
  1. OCRELIZUMAB [Suspect]
     Active Substance: OCRELIZUMAB
     Indication: Relapsing-remitting multiple sclerosis
     Dosage: 300MG/250 ML
     Route: 042
     Dates: start: 20190215
  2. OCRELIZUMAB [Suspect]
     Active Substance: OCRELIZUMAB
     Dosage: 300MG/250 ML
     Route: 042
     Dates: start: 20190301, end: 20190301
  3. OCRELIZUMAB [Suspect]
     Active Substance: OCRELIZUMAB
     Dosage: 600 MG/500 ML
     Route: 042
     Dates: start: 20190909, end: 20190909
  4. OCRELIZUMAB [Suspect]
     Active Substance: OCRELIZUMAB
     Dosage: 600 MG/?500 ML
     Route: 042
     Dates: start: 20200311, end: 20200311
  5. OCRELIZUMAB [Suspect]
     Active Substance: OCRELIZUMAB
     Dosage: 600MG/500ML
     Route: 042
     Dates: start: 20200922, end: 20200922
  6. OCRELIZUMAB [Suspect]
     Active Substance: OCRELIZUMAB
     Dosage: 600MG/500ML
     Route: 042
     Dates: start: 20210308, end: 20210308
  7. OCRELIZUMAB [Suspect]
     Active Substance: OCRELIZUMAB
     Dosage: 600MG/500ML
     Route: 042
     Dates: start: 20221107, end: 20221107
  8. OCRELIZUMAB [Suspect]
     Active Substance: OCRELIZUMAB
     Dosage: 600MG/500ML
     Route: 042
     Dates: start: 20220328, end: 20220328
  9. OCRELIZUMAB [Suspect]
     Active Substance: OCRELIZUMAB
     Dosage: 600MG/500ML
     Route: 042
     Dates: start: 20210908, end: 20210908
  10. DEXOJECT [Concomitant]
     Dosage: 01/MAR/2019, 09/SEP/2019, 11/MAR/2020, 22/SEP/2020,
     Route: 042
     Dates: start: 20190215, end: 20190215
  11. AVIJECT [Concomitant]
     Dosage: 01/MAR/2019,
     Route: 042
     Dates: start: 20190215, end: 20190215
  12. TAMOL (TURKEY) [Concomitant]
     Dosage: 01/MAR/2019, 09/SEP/2019, 11/MAR/2020, 22/SEP/2020, 08/MAR/2021
     Route: 048
     Dates: start: 20190215, end: 20190215
  13. CAUPHE [Concomitant]
     Dosage: 11/MAR/2020,
     Route: 042
     Dates: start: 20190909, end: 20190909
  14. INFENIL [Concomitant]
     Route: 042
     Dates: start: 20200922, end: 20200922
  15. DEKORT [Concomitant]
     Active Substance: DEXAMETHASONE
     Route: 042
     Dates: start: 20210308, end: 20210308

REACTIONS (1)
  - COVID-19 [Recovered/Resolved]

NARRATIVE: CASE EVENT DATE: 20201125
